FAERS Safety Report 14234519 (Version 2)
Quarter: 2018Q3

REPORT INFORMATION
  Report Type: Spontaneous
  Country: DE (occurrence: DE)
  Receive Date: 20171129
  Receipt Date: 20180720
  Transmission Date: 20181010
  Serious: Yes (Death, Other)
  Sender: FDA-Public Use
  Company Number: DE-SUN PHARMACEUTICAL INDUSTRIES LTD-2017RR-155422

PATIENT
  Sex: Female

DRUGS (3)
  1. FOLSAN [Concomitant]
     Active Substance: FOLIC ACID
     Indication: PROPHYLAXIS OF NEURAL TUBE DEFECT
     Dosage: 0.4 MG, DAILY, SINCE APRIL 2016
     Route: 064
  2. VENLAFAXINE [Suspect]
     Active Substance: VENLAFAXINE HYDROCHLORIDE
     Indication: DEPRESSION
     Dosage: 75 MG, DAILY
     Route: 064
     Dates: start: 20160413, end: 20160429
  3. FOLSAN(NEM) [Suspect]
     Active Substance: FOLIC ACID

REACTIONS (4)
  - Amniotic fluid volume increased [None]
  - Death neonatal [Fatal]
  - Premature baby [None]
  - Maternal drugs affecting foetus [None]
